FAERS Safety Report 17183854 (Version 1)
Quarter: 2019Q4

REPORT INFORMATION
  Report Type: Report from Study
  Country: US (occurrence: US)
  Receive Date: 20191220
  Receipt Date: 20191220
  Transmission Date: 20200122
  Serious: Yes (Other)
  Sender: FDA-Public Use
  Company Number: US-MYLANLABS-2019M1126125

PATIENT
  Sex: Female

DRUGS (2)
  1. PENTOSTATIN. [Suspect]
     Active Substance: PENTOSTATIN
     Indication: LEUKAEMIA
     Route: 065
  2. METHOTREXATE. [Suspect]
     Active Substance: METHOTREXATE
     Indication: LEUKAEMIA
     Route: 065

REACTIONS (3)
  - Placental disorder [Recovered/Resolved]
  - Maternal exposure before pregnancy [Recovered/Resolved]
  - Foetal growth restriction [Recovered/Resolved]
